FAERS Safety Report 9009982 (Version 1)
Quarter: 2013Q1

REPORT INFORMATION
  Report Type: Spontaneous
  Country: US (occurrence: US)
  Receive Date: 20130110
  Receipt Date: 20130110
  Transmission Date: 20140127
  Serious: Yes (Hospitalization)
  Sender: FDA-Public Use
  Company Number: US-BRISTOL-MYERS SQUIBB COMPANY-17147273

PATIENT
  Sex: 0

DRUGS (1)
  1. NULOJIX [Suspect]
     Indication: RENAL TRANSPLANT

REACTIONS (1)
  - Kidney transplant rejection [Unknown]
